FAERS Safety Report 5847594-7 (Version None)
Quarter: 2008Q3

REPORT INFORMATION
  Report Type: 
  Country: None (occurrence: None)
  Receive Date: 20080818
  Receipt Date: 20080811
  Transmission Date: 20090109
  Serious: Yes (Other)
  Sender: FDA-Public Use
  Company Number: DE-SP-2008-02180

PATIENT
  Age: 41 Year
  Sex: Male
  Weight: 82 kg

DRUGS (4)
  1. IMMUCYST [Suspect]
     Indication: BLADDER CANCER
     Dosage: NOT REPORTED.
     Route: 043
     Dates: start: 20080407, end: 20080417
  2. IMMUCYST [Suspect]
     Dosage: NOT REPORTED.
     Route: 043
     Dates: start: 20080407, end: 20080417
  3. IMMUCYST [Suspect]
     Dosage: NOT REPORTED.
     Route: 043
     Dates: start: 20080407, end: 20080417
  4. OFLOXACIN [Concomitant]
     Indication: EPIDIDYMITIS
     Route: 048
     Dates: start: 20080407, end: 20080417

REACTIONS (3)
  - EPIDIDYMITIS [None]
  - LEUKOCYTURIA [None]
  - PROSTATITIS [None]
